FAERS Safety Report 23997880 (Version 1)
Quarter: 2024Q2

REPORT INFORMATION
  Report Type: Spontaneous
  Country: US (occurrence: US)
  Receive Date: 20240621
  Receipt Date: 20240621
  Transmission Date: 20240715
  Serious: No
  Sender: FDA-Public Use
  Company Number: US-IGSA-BIG0025447

PATIENT
  Age: 38 Year
  Sex: Female
  Weight: 79.365 kg

DRUGS (2)
  1. HYPERRAB [Suspect]
     Active Substance: HUMAN RABIES VIRUS IMMUNE GLOBULIN
     Indication: Exposure to communicable disease
     Dosage: UNK
     Route: 030
     Dates: start: 20230811
  2. RABIES VACCINE [Concomitant]
     Active Substance: RABIES VACCINE
     Indication: Exposure to communicable disease
     Dosage: UNK
     Dates: start: 20230811

REACTIONS (3)
  - Discomfort [Recovered/Resolved]
  - Injection site pain [Recovered/Resolved]
  - Exposure during pregnancy [Recovered/Resolved]

NARRATIVE: CASE EVENT DATE: 20230811
